FAERS Safety Report 4834947-9 (Version None)
Quarter: 2005Q4

REPORT INFORMATION
  Report Type: 
  Country: None (occurrence: None)
  Receive Date: 20051115
  Receipt Date: 20051027
  Transmission Date: 20060501
  Serious: Yes (Hospitalization, Other)
  Sender: FDA-Public Use
  Company Number: USA0510111997

PATIENT
  Age: 63 Year
  Sex: Female

DRUGS (5)
  1. ILETIN [Suspect]
     Indication: DIABETES MELLITUS
     Dates: start: 19550101
  2. HUMULIN R [Suspect]
     Indication: DIABETES MELLITUS
  3. HUMULIN N [Suspect]
     Indication: DIABETES MELLITUS
     Dates: end: 20000101
  4. HUMULIN L [Suspect]
     Dates: end: 20000101
  5. PROGRAF [Concomitant]

REACTIONS (15)
  - ABDOMINAL WALL OPERATION [None]
  - BLADDER OPERATION [None]
  - BLINDNESS [None]
  - BLOOD GLUCOSE FLUCTUATION [None]
  - COMA [None]
  - CORNEAL TRANSPLANT [None]
  - HEPATIC FAILURE [None]
  - HYSTERECTOMY [None]
  - LIVER TRANSPLANT [None]
  - MALIGNANT MELANOMA [None]
  - MALIGNANT TUMOUR EXCISION [None]
  - SALPINGO-OOPHORECTOMY [None]
  - SARCOIDOSIS [None]
  - SKIN GRAFT [None]
  - SMALL INTESTINE CARCINOMA [None]
